FAERS Safety Report 21197969 (Version 2)
Quarter: 2022Q4

REPORT INFORMATION
  Report Type: Report from Study
  Country: US (occurrence: US)
  Receive Date: 20220810
  Receipt Date: 20221021
  Transmission Date: 20230112
  Serious: Yes (Death)
  Sender: FDA-Public Use
  Company Number: US-ABBVIE-22K-163-4499682-00

PATIENT
  Age: 83 Year
  Sex: Female

DRUGS (1)
  1. VENCLEXTA [Suspect]
     Active Substance: VENETOCLAX
     Indication: Chronic lymphocytic leukaemia
     Dosage: TAKE 4 TABLETS BY MOUTH DAILY WITH BREAKFAST AND A FULL GLASS OF WATER (STRENGTH 100MG)
     Route: 048
     Dates: start: 20211111, end: 20220805

REACTIONS (1)
  - Death [Fatal]

NARRATIVE: CASE EVENT DATE: 20220805
